FAERS Safety Report 9349130 (Version 3)
Quarter: 2013Q3

REPORT INFORMATION
  Report Type: Spontaneous
  Country: US (occurrence: US)
  Receive Date: 20130614
  Receipt Date: 20130724
  Transmission Date: 20140515
  Serious: Yes (Hospitalization, Other)
  Sender: FDA-Public Use
  Company Number: US-009507513-1306USA004494

PATIENT
  Sex: Male

DRUGS (2)
  1. INTRONA [Suspect]
     Indication: HEPATITIS C
     Dosage: UNK
     Dates: start: 19940101, end: 19940601
  2. INTRONA [Suspect]
     Dosage: UNK
     Dates: start: 20130609

REACTIONS (7)
  - Pulmonary oedema [Unknown]
  - Ascites [Unknown]
  - Diabetes mellitus [Unknown]
  - Ascites [Unknown]
  - Dyspnoea [Unknown]
  - Dyspnoea [Unknown]
  - Abdominal pain [Unknown]
